FAERS Safety Report 9509917 (Version 2)
Quarter: 2013Q3

REPORT INFORMATION
  Report Type: Spontaneous
  Country: US (occurrence: US)
  Receive Date: 20130909
  Receipt Date: 20130909
  Transmission Date: 20140515
  Serious: No
  Sender: FDA-Public Use
  Company Number: US-BRISTOL-MYERS SQUIBB COMPANY-18804062

PATIENT
  Age: 64 Year
  Sex: Female
  Weight: 66.21 kg

DRUGS (1)
  1. ABILIFY TABS [Suspect]
     Dosage: 2 MG TABLET DAILY 4 DAYS, ANDINCREASED TO TWO 2 MG TABLETS DAILY X 4 DAYS AND 3 2 MG TABLETS DAILY

REACTIONS (3)
  - Asthenia [Not Recovered/Not Resolved]
  - Pain [Unknown]
  - Vision blurred [Recovering/Resolving]
